FAERS Safety Report 5068959-X (Version None)
Quarter: 2006Q3

REPORT INFORMATION
  Report Type: 
  Country: None (occurrence: None)
  Receive Date: 20060728
  Receipt Date: 20060717
  Transmission Date: 20061208
  Serious: Yes (Hospitalization)
  Sender: FDA-Public Use
  Company Number: 200610621BFR

PATIENT
  Age: 55 Year
  Sex: Male
  Weight: 91 kg

DRUGS (6)
  1. NEXAVAR [Suspect]
     Indication: METASTATIC RENAL CELL CARCINOMA
     Dosage: 200 MG, BID, ORAL
     Route: 048
     Dates: start: 20060512
  2. OXYCONTIN [Concomitant]
  3. ZELITREX [Concomitant]
  4. ASPEGIC 1000 [Concomitant]
  5. FORLAX [Concomitant]
  6. FRAXIPARINE [Concomitant]

REACTIONS (16)
  - ABASIA [None]
  - ANAEMIA [None]
  - ANOREXIA [None]
  - ASTHENIA [None]
  - BONE PAIN [None]
  - CACHEXIA [None]
  - DEHYDRATION [None]
  - ESCHAR [None]
  - GENERAL PHYSICAL HEALTH DETERIORATION [None]
  - HYPERCALCAEMIA [None]
  - HYPERHIDROSIS [None]
  - INFLAMMATION [None]
  - LUNG DISORDER [None]
  - PULMONARY EMBOLISM [None]
  - PYREXIA [None]
  - RENAL FAILURE [None]
